FAERS Safety Report 12426642 (Version 3)
Quarter: 2016Q2

REPORT INFORMATION
  Report Type: Spontaneous
  Country: JP (occurrence: JP)
  Receive Date: 20160601
  Receipt Date: 20160621
  Transmission Date: 20160815
  Serious: No
  Sender: FDA-Public Use
  Company Number: PHHY2016JP074581

PATIENT
  Age: 17 Year
  Sex: Female

DRUGS (2)
  1. PAZOPANIB [Suspect]
     Active Substance: PAZOPANIB
     Indication: RENAL CELL CARCINOMA
     Dosage: UNK
     Route: 065
  2. PAZOPANIB [Suspect]
     Active Substance: PAZOPANIB
     Indication: METASTASES TO LIVER

REACTIONS (7)
  - Erythema [Recovering/Resolving]
  - Skin ulcer [Recovering/Resolving]
  - Staphylococcal infection [Unknown]
  - Purpura [Recovering/Resolving]
  - Skin erosion [Recovering/Resolving]
  - Skin disorder [Unknown]
  - Pseudomonas infection [Unknown]
